FAERS Safety Report 8016243-4 (Version None)
Quarter: 2011Q4

REPORT INFORMATION
  Report Type: 
  Country: None (occurrence: None)
  Receive Date: 20111228
  Receipt Date: 20111228
  Transmission Date: 20120403
  Serious: Yes (Disabling)
  Sender: FDA-Public Use
  Company Number: None

PATIENT
  Age: 67 Year
  Sex: Male
  Weight: 75.7507 kg

DRUGS (2)
  1. IMDUR [Suspect]
     Indication: ANGINA PECTORIS
     Dosage: ONE PILL DAILY (LESS ONE MONTH)
     Dates: start: 20110711
  2. IMDUR [Suspect]
     Indication: PROPHYLAXIS
     Dosage: ONE PILL DAILY (LESS ONE MONTH)
     Dates: start: 20110711

REACTIONS (4)
  - LID LAG [None]
  - EYE DISORDER [None]
  - HEADACHE [None]
  - MIOSIS [None]
